FAERS Safety Report 10072077 (Version 1)
Quarter: 2014Q2

REPORT INFORMATION
  Report Type: Spontaneous
  Country: GB (occurrence: None)
  Receive Date: 20140409
  Receipt Date: 20140409
  Transmission Date: 20141212
  Serious: Yes (Hospitalization, Other)
  Sender: FDA-Public Use
  Company Number: AUR-APL-2014-04186

PATIENT
  Age: 34 Year
  Sex: Female
  Weight: 62.7 kg

DRUGS (2)
  1. MIRTAZAPINE [Suspect]
     Indication: DEPRESSION
     Dosage: 15 MG (15 MG, 1 IN 1 D), ORAL
     Route: 048
     Dates: start: 20140305, end: 20140310
  2. DIAZEPAM (DIAZEPAM) [Concomitant]

REACTIONS (2)
  - Arthralgia [None]
  - White blood cell count decreased [None]
